FAERS Safety Report 8472811-7 (Version None)
Quarter: 2012Q2

REPORT INFORMATION
  Report Type: 
  Country: None (occurrence: None)
  Receive Date: 20120627
  Receipt Date: 20120625
  Transmission Date: 20120825
  Serious: No
  Sender: FDA-Public Use
  Company Number: US-PFIZER INC-2012138197

PATIENT
  Sex: Female

DRUGS (2)
  1. SUTENT [Suspect]
     Dosage: 25 MG, 1X/DAY
  2. SUTENT [Suspect]
     Dosage: 25 MG, 2X/DAY, 1 IN MORNING AND 1 AT NIGHT FOR A WEEK

REACTIONS (2)
  - PLATELET COUNT DECREASED [None]
  - INFLUENZA [None]
